FAERS Safety Report 10768747 (Version 1)
Quarter: 2015Q1

REPORT INFORMATION
  Report Type: Spontaneous
  Country: GR (occurrence: None)
  Receive Date: 20150204
  Receipt Date: 20150204
  Transmission Date: 20150721
  Serious: Yes (Hospitalization, Other)
  Sender: FDA-Public Use
  Company Number: 2015SEB00005

PATIENT
  Age: 29 Year
  Sex: Female

DRUGS (5)
  1. HYDROCORTISONE (HYDROCORTISONE) UNKNOWN [Suspect]
     Active Substance: HYDROCORTISONE
     Indication: DERMATITIS ALLERGIC
     Route: 042
  2. CALCIUM (CALCIUM) [Concomitant]
     Active Substance: CALCIUM
  3. AZITHROMYCIN [Concomitant]
     Active Substance: AZITHROMYCIN ANHYDROUS
  4. LEVOCETIRIZINE (LEVOCETIRIZINE) [Concomitant]
     Active Substance: LEVOCETIRIZINE
  5. ALPHACALCIDOL (1-HYDROXYCHOLECALCIFEROL) [Concomitant]

REACTIONS (6)
  - Tetany [None]
  - Infectious mononucleosis [None]
  - Gamma-glutamyltransferase increased [None]
  - Hypocalcaemia [None]
  - Alanine aminotransferase increased [None]
  - Dermatitis allergic [None]
